FAERS Safety Report 8235086 (Version 3)
Quarter: 2014Q1

REPORT INFORMATION
  Report Type: Spontaneous
  Country: US (occurrence: US)
  Receive Date: 20111108
  Receipt Date: 20140107
  Transmission Date: 20141002
  Serious: Yes (Other)
  Sender: FDA-Public Use
  Company Number: US-US-EMD SERONO, INC.-7093251

PATIENT
  Sex: Female

DRUGS (4)
  1. REBIF [Suspect]
     Indication: PROGRESSIVE MULTIPLE SCLEROSIS
     Route: 058
     Dates: start: 20060317
  2. BACLOFEN [Suspect]
     Indication: MUSCLE SPASMS
  3. TIZANIDINE [Concomitant]
     Indication: MUSCLE SPASMS
  4. HYDROCODONE [Concomitant]
     Indication: PAIN

REACTIONS (5)
  - Unresponsive to stimuli [Recovered/Resolved]
  - Loss of consciousness [Unknown]
  - Convulsion [Recovered/Resolved]
  - Vitamin D decreased [Unknown]
  - Constipation [Unknown]
